FAERS Safety Report 24382608 (Version 3)
Quarter: 2025Q3

REPORT INFORMATION
  Report Type: Report from Study
  Country: US (occurrence: US)
  Receive Date: 20241001
  Receipt Date: 20250803
  Transmission Date: 20251021
  Serious: Yes (Hospitalization, Other)
  Sender: ALEXION PHARMACEUTICALS
  Company Number: US-ALXN-202409USA001219US

PATIENT
  Age: 40 Year
  Sex: Female
  Weight: 134 kg

DRUGS (73)
  1. STRENSIQ [Suspect]
     Active Substance: ASFOTASE ALFA
     Indication: Hypophosphatasia
     Route: 065
  2. HUMIRA [Suspect]
     Active Substance: ADALIMUMAB
     Route: 065
  3. MORPHINE [Concomitant]
     Active Substance: MORPHINE
     Route: 065
  4. ONDANSETRON [Concomitant]
     Active Substance: ONDANSETRON
     Route: 065
  5. SODIUM CHLORIDE [Concomitant]
     Active Substance: SODIUM CHLORIDE
  6. FAMOTIDINE [Concomitant]
     Active Substance: FAMOTIDINE
     Route: 065
  7. IOPAMIDOL [Concomitant]
     Active Substance: IOPAMIDOL
     Route: 065
  8. NITROFURANTOIN [Concomitant]
     Active Substance: NITROFURANTOIN
     Route: 065
  9. IOHEXOL [Concomitant]
     Active Substance: IOHEXOL
     Route: 065
  10. LACTATED RINGERS SOLUTION [Concomitant]
     Active Substance: CALCIUM CHLORIDE\POTASSIUM CHLORIDE\SODIUM CHLORIDE\SODIUM LACTATE
  11. VANCOCIN [Concomitant]
     Active Substance: VANCOMYCIN HYDROCHLORIDE
     Route: 065
  12. ASPIRIN [Concomitant]
     Active Substance: ASPIRIN
     Route: 065
  13. ATORVASTATIN [Concomitant]
     Active Substance: ATORVASTATIN
     Route: 065
  14. CHOLESTYRAMINE [Concomitant]
     Active Substance: CHOLESTYRAMINE
     Route: 065
  15. COLESEVELAM [Concomitant]
     Active Substance: COLESEVELAM
     Route: 065
  16. DEXTROSE [Concomitant]
     Active Substance: DEXTROSE MONOHYDRATE
     Route: 065
  17. DOXYCYCLINE [Concomitant]
     Active Substance: DOXYCYCLINE
     Route: 065
  18. HYDROXYCHLOROQUINE [Concomitant]
     Active Substance: HYDROXYCHLOROQUINE
     Route: 065
  19. LEVOTHYROXINE [Concomitant]
     Active Substance: LEVOTHYROXINE
     Route: 065
  20. LIOTHYRONINE [Concomitant]
     Active Substance: LIOTHYRONINE
     Route: 065
  21. MAGNESIUM OXIDE [Concomitant]
     Active Substance: MAGNESIUM OXIDE
     Route: 065
  22. MAGNESIUM SULFATE [Concomitant]
     Active Substance: MAGNESIUM SULFATE
     Route: 065
  23. PANTOPRAZOLE [Concomitant]
     Active Substance: PANTOPRAZOLE
     Route: 065
  24. PILOCARPINE [Concomitant]
     Active Substance: PILOCARPINE
     Route: 065
  25. POLYETHYLENE GLYCOL [Concomitant]
     Active Substance: POLYETHYLENE GLYCOL
     Route: 065
  26. POTASSIUM BICARBONATE [Concomitant]
     Active Substance: POTASSIUM BICARBONATE
     Route: 065
  27. CITRIC ACID [Concomitant]
     Active Substance: CITRIC ACID MONOHYDRATE
     Route: 065
  28. POTASSIUM CHLORIDE [Concomitant]
     Active Substance: POTASSIUM CHLORIDE
     Route: 065
  29. PRAZOSIN [Concomitant]
     Active Substance: PRAZOSIN
     Route: 065
  30. VENLAFAXINE HYDROCHLORIDE [Concomitant]
     Active Substance: VENLAFAXINE HYDROCHLORIDE
     Route: 065
  31. CIPROFLOXACIN [Concomitant]
     Active Substance: CIPROFLOXACIN
     Route: 065
  32. LOVENOX [Concomitant]
     Active Substance: ENOXAPARIN SODIUM
     Route: 065
  33. FLUCONAZOLE [Concomitant]
     Active Substance: FLUCONAZOLE
     Indication: Vulvovaginal candidiasis
     Route: 065
  34. XANAX [Concomitant]
     Active Substance: ALPRAZOLAM
     Route: 065
  35. BUSPAR [Concomitant]
     Active Substance: BUSPIRONE HYDROCHLORIDE
     Route: 065
  36. VITAMIN D3 [Concomitant]
     Active Substance: CHOLECALCIFEROL
     Route: 065
  37. DICYCLOMINE [Concomitant]
     Active Substance: DICYCLOMINE HYDROCHLORIDE
     Route: 065
  38. CARDIZEM [Concomitant]
     Active Substance: DILTIAZEM HYDROCHLORIDE
     Route: 065
  39. GUAIFENESIN [Concomitant]
     Active Substance: GUAIFENESIN
  40. BYSTOLIC [Concomitant]
     Active Substance: NEBIVOLOL HYDROCHLORIDE
  41. NYSTATIN [Concomitant]
     Active Substance: NYSTATIN
  42. ZOCOR [Concomitant]
     Active Substance: SIMVASTATIN
     Route: 065
  43. TRIAMCINOLONE ACETONIDE [Concomitant]
     Active Substance: TRIAMCINOLONE ACETONIDE
  44. VENLAFAXINE [Concomitant]
     Active Substance: VENLAFAXINE HYDROCHLORIDE
     Route: 065
  45. TUMS [Concomitant]
     Active Substance: CALCIUM CARBONATE
     Route: 065
  46. ZYRTEC [Concomitant]
     Active Substance: CETIRIZINE HYDROCHLORIDE
     Route: 065
  47. CLONIDINE [Concomitant]
     Active Substance: CLONIDINE
     Route: 065
  48. COLACE [Concomitant]
     Active Substance: DOCUSATE SODIUM
     Route: 065
  49. VISTARIL [Concomitant]
     Active Substance: HYDROXYZINE PAMOATE
     Route: 065
  50. ATIVAN [Concomitant]
     Active Substance: LORAZEPAM
     Route: 065
  51. MYLANTA [Concomitant]
     Active Substance: ALUMINUM HYDROXIDE\DIMETHICONE\MAGNESIUM HYDROXIDE
     Route: 065
  52. NARCAN [Concomitant]
     Active Substance: NALOXONE HYDROCHLORIDE
     Route: 065
  53. NEBIVOLOL [Concomitant]
     Active Substance: NEBIVOLOL
     Route: 065
  54. NICODERM CQ [Concomitant]
     Active Substance: NICOTINE
     Route: 065
  55. TRAZODONE [Concomitant]
     Active Substance: TRAZODONE HYDROCHLORIDE
     Route: 065
  56. LIDOCAINE HYDROCHLORIDE [Concomitant]
     Active Substance: LIDOCAINE HYDROCHLORIDE
  57. EPINEPHRINE [Concomitant]
     Active Substance: EPINEPHRINE
     Route: 065
  58. ESOMEPRAZOLE [Concomitant]
     Active Substance: ESOMEPRAZOLE
     Route: 065
  59. ESOMEPRAZOLE [Concomitant]
     Active Substance: ESOMEPRAZOLE
     Route: 065
  60. SUCRALFATE [Concomitant]
     Active Substance: SUCRALFATE
     Route: 065
  61. GADAVIST [Concomitant]
     Active Substance: GADOBUTROL
     Route: 065
  62. TYLENOL [Concomitant]
     Active Substance: ACETAMINOPHEN
     Route: 065
  63. NORVASC [Concomitant]
     Active Substance: AMLODIPINE BESYLATE
     Route: 065
  64. CLINDAMYCIN [Concomitant]
     Active Substance: CLINDAMYCIN
     Indication: Cellulitis
  65. DIPHENHYDRAMINE [Concomitant]
     Active Substance: DIPHENHYDRAMINE
     Route: 065
  66. FENTANYL [Concomitant]
     Active Substance: FENTANYL
     Route: 065
  67. HEPARIN [Concomitant]
     Active Substance: HEPARIN SODIUM
     Route: 065
  68. VISIPAQUE [Concomitant]
     Active Substance: IODIXANOL
     Route: 065
  69. METOPROLOL TARTRATE [Concomitant]
     Active Substance: METOPROLOL TARTRATE
     Route: 065
  70. MIDAZOLAM [Concomitant]
     Active Substance: MIDAZOLAM
     Route: 065
  71. NITROSTAT [Concomitant]
     Active Substance: NITROGLYCERIN
  72. REGADENOSON [Concomitant]
     Active Substance: REGADENOSON
     Route: 065
  73. LUMASON [Concomitant]
     Active Substance: SULFUR HEXAFLUORIDE
     Route: 065

REACTIONS (39)
  - Device related infection [Unknown]
  - Staphylococcal infection [Unknown]
  - Kidney infection [Unknown]
  - Chronic kidney disease [Unknown]
  - Pyelonephritis [Unknown]
  - Drug dependence [Unknown]
  - Brief psychotic disorder without marked stressors [Unknown]
  - Drug abuse [Unknown]
  - Neurogenic bladder [Unknown]
  - Enterococcus test positive [Unknown]
  - Ankle fracture [Unknown]
  - Coagulation time prolonged [Unknown]
  - Blood potassium abnormal [Unknown]
  - Blood magnesium abnormal [Unknown]
  - Gait disturbance [Unknown]
  - Impaired healing [Unknown]
  - Injection site haemorrhage [Unknown]
  - Blood viscosity decreased [Unknown]
  - Vertigo [Unknown]
  - Asthenia [Unknown]
  - Fatigue [Unknown]
  - Adrenal neoplasm [Unknown]
  - Flank pain [Unknown]
  - Pain in extremity [Unknown]
  - Peripheral swelling [Unknown]
  - Skin disorder [Unknown]
  - Borderline personality disorder [Unknown]
  - Cardiac murmur [Unknown]
  - Abscess [Unknown]
  - Breast disorder [Unknown]
  - Chest pain [Unknown]
  - Pleuritic pain [Unknown]
  - Dyspnoea [Unknown]
  - Abdominal pain [Unknown]
  - Generalised anxiety disorder [Unknown]
  - Panic attack [Unknown]
  - Palpitations [Unknown]
  - Culture urine positive [Unknown]
  - Klebsiella test positive [Unknown]

NARRATIVE: CASE EVENT DATE: 20230101
